FAERS Safety Report 10202748 (Version 1)
Quarter: 2014Q2

REPORT INFORMATION
  Report Type: Spontaneous
  Country: IT (occurrence: IT)
  Receive Date: 20140528
  Receipt Date: 20140528
  Transmission Date: 20141212
  Serious: Yes (Other)
  Sender: FDA-Public Use
  Company Number: IT-WATSON-2014-11342

PATIENT
  Age: 50 Year
  Sex: Male

DRUGS (8)
  1. TACROLIMUS (UNKNOWN) [Suspect]
     Indication: IMMUNOSUPPRESSION
     Dosage: 0.1 MG/KG, DAILY
     Route: 065
  2. BASILIXIMAB [Concomitant]
     Indication: IMMUNOSUPPRESSION
     Dosage: UNKNOWN
     Route: 065
  3. MYCOPHENOLATE MOFETIL [Concomitant]
     Indication: IMMUNOSUPPRESSION
     Dosage: 2 G, DAILY
     Route: 065
  4. MYCOPHENOLATE MOFETIL [Concomitant]
     Dosage: 1.5 MG, DAILY
     Route: 065
  5. METHYLPREDNISOLONE [Concomitant]
     Indication: IMMUNOSUPPRESSION
     Dosage: 125 MG, UNK
     Route: 042
  6. METHYLPREDNISOLONE [Concomitant]
     Dosage: 250 MG, UNK
     Route: 042
  7. METHYLPREDNISOLONE [Concomitant]
     Dosage: 500 MG, UNK
     Route: 042
  8. PREDNISONE [Concomitant]
     Indication: IMMUNOSUPPRESSION
     Dosage: 20 MG, DAILY
     Route: 048

REACTIONS (3)
  - Nephropathy toxic [Recovering/Resolving]
  - Tremor [Unknown]
  - Drug level below therapeutic [Unknown]
